FAERS Safety Report 10607780 (Version 2)
Quarter: 2015Q1

REPORT INFORMATION
  Report Type: Spontaneous
  Country: DE (occurrence: DE)
  Receive Date: 20141125
  Receipt Date: 20150116
  Transmission Date: 20150720
  Serious: Yes (Hospitalization, Other)
  Sender: FDA-Public Use
  Company Number: DE-JNJFOC-20141110694

PATIENT
  Age: 88 Year
  Sex: Female

DRUGS (3)
  1. SERTRALINE [Concomitant]
     Active Substance: SERTRALINE HYDROCHLORIDE
     Indication: DEPRESSION
     Route: 065
     Dates: start: 20141022
  2. DOMINAL FORTE [Concomitant]
     Active Substance: PROTHIPENDYL HYDROCHLORIDE
     Indication: SLEEP DISORDER
     Route: 065
     Dates: start: 20141022
  3. REMINYL [Suspect]
     Active Substance: GALANTAMINE
     Indication: DEMENTIA
     Route: 048
     Dates: start: 2011, end: 20141112

REACTIONS (4)
  - Hypokalaemia [Unknown]
  - Arthralgia [Recovered/Resolved]
  - Pain in extremity [Recovered/Resolved]
  - Neuralgia [Recovered/Resolved]
